FAERS Safety Report 8096396-2 (Version None)
Quarter: 2012Q1

REPORT INFORMATION
  Report Type: 
  Country: None (occurrence: None)
  Receive Date: 20120129
  Receipt Date: 20111109
  Transmission Date: 20120608
  Serious: No
  Sender: FDA-Public Use
  Company Number: US-ABBOTT-11P-163-0872819-00

PATIENT
  Age: 47 Year
  Sex: Female

DRUGS (12)
  1. HUMIRA [Suspect]
  2. PAXIL [Concomitant]
     Indication: PANIC ATTACK
  3. MICARDIS [Concomitant]
     Indication: HYPERTENSION
  4. FISH OIL [Concomitant]
     Indication: PRODUCT USED FOR UNKNOWN INDICATION
  5. VITAMIN E [Concomitant]
     Indication: PRODUCT USED FOR UNKNOWN INDICATION
  6. FERROUS SULFATE TAB [Concomitant]
     Indication: ANAEMIA
  7. IMURAN [Concomitant]
     Indication: CROHN'S DISEASE
  8. ASACOL [Concomitant]
     Indication: CROHN'S DISEASE
  9. HUMIRA [Suspect]
     Indication: CROHN'S DISEASE
     Dates: start: 20111029, end: 20111029
  10. ATENOLOL [Concomitant]
     Indication: HYPERTENSION
  11. ONE A DAY WOMEN'S MULTIVITAMINS [Concomitant]
     Indication: PRODUCT USED FOR UNKNOWN INDICATION
  12. VITAMIN D [Concomitant]
     Indication: PRODUCT USED FOR UNKNOWN INDICATION

REACTIONS (1)
  - ARTHRALGIA [None]
